FAERS Safety Report 17809088 (Version 8)
Quarter: 2022Q1

REPORT INFORMATION
  Report Type: Spontaneous
  Country: US (occurrence: US)
  Receive Date: 20200520
  Receipt Date: 20220225
  Transmission Date: 20220423
  Serious: Yes (Hospitalization)
  Sender: FDA-Public Use
  Company Number: US-CELGENE-USA-20200504127

PATIENT
  Age: 83 Year
  Sex: Female
  Weight: 67 kg

DRUGS (59)
  1. VIDAZA [Suspect]
     Active Substance: AZACITIDINE
     Indication: Acute myeloid leukaemia
     Dosage: 75 MILLIGRAM/SQ. METER
     Route: 058
     Dates: start: 20180426, end: 20181010
  2. VIDAZA [Suspect]
     Active Substance: AZACITIDINE
     Dosage: 37 MILLIGRAM/SQ. METER
     Route: 041
     Dates: start: 20181011, end: 20190109
  3. VIDAZA [Suspect]
     Active Substance: AZACITIDINE
     Dosage: 37.5 MILLIGRAM/SQ. METER
     Route: 041
     Dates: start: 20190214, end: 20200422
  4. VIDAZA [Suspect]
     Active Substance: AZACITIDINE
     Dosage: 37.5 MILLIGRAM/SQ. METER
     Route: 058
     Dates: start: 20200519
  5. VENETOCLAX [Suspect]
     Active Substance: VENETOCLAX
     Indication: Acute myeloid leukaemia
     Dosage: 100 MILLIGRAM
     Route: 048
     Dates: start: 20180426, end: 20180426
  6. VENETOCLAX [Suspect]
     Active Substance: VENETOCLAX
     Dosage: 200 MILLIGRAM
     Route: 048
     Dates: start: 20180427, end: 20180427
  7. VENETOCLAX [Suspect]
     Active Substance: VENETOCLAX
     Dosage: 400 MILLIGRAM
     Route: 048
     Dates: start: 20180428, end: 20200504
  8. VENETOCLAX [Suspect]
     Active Substance: VENETOCLAX
     Dosage: 400 MILLIGRAM
     Route: 048
     Dates: start: 20200519
  9. ALLOPURINOL [Concomitant]
     Active Substance: ALLOPURINOL
     Indication: Prophylaxis
     Dosage: 300 MILLIGRAM
     Route: 048
     Dates: start: 20180426, end: 20180501
  10. SODIUM CHLORIDE [Concomitant]
     Active Substance: SODIUM CHLORIDE
     Indication: Prophylaxis
     Dosage: 1960 MILLILITER
     Route: 041
     Dates: start: 20180426, end: 20180502
  11. SODIUM CHLORIDE [Concomitant]
     Active Substance: SODIUM CHLORIDE
     Dosage: 500 MILLILITER
     Route: 041
     Dates: start: 20190705, end: 20190705
  12. ACETYLCYSTEINE [Concomitant]
     Active Substance: ACETYLCYSTEINE
     Indication: Chronic obstructive pulmonary disease
     Dosage: 600 MILLIGRAM
     Route: 048
     Dates: start: 201707
  13. ASPIRIN [Concomitant]
     Active Substance: ASPIRIN
     Indication: Coronary artery disease
     Dosage: 81 MILLIGRAM
     Route: 048
     Dates: start: 2015
  14. METOPROLOL [Concomitant]
     Active Substance: METOPROLOL
     Indication: Hypertension
     Dosage: 12.5 MILLIGRAM
     Route: 048
     Dates: start: 2014
  15. ZOLOFT [Concomitant]
     Active Substance: SERTRALINE HYDROCHLORIDE
     Indication: Depression
     Dosage: 50 MILLIGRAM
     Route: 048
     Dates: start: 2014
  16. VALSARTAN [Concomitant]
     Active Substance: VALSARTAN
     Indication: Hypertension
     Dosage: 80 MILLIGRAM
     Route: 048
     Dates: start: 2014
  17. OXYGEN [Concomitant]
     Active Substance: OXYGEN
     Indication: Chronic obstructive pulmonary disease
     Dosage: 3 LITERS
     Route: 055
     Dates: start: 2015
  18. OXYGEN [Concomitant]
     Active Substance: OXYGEN
     Indication: Inhalation therapy
  19. CALCIUM CARBONATE [Concomitant]
     Active Substance: CALCIUM CARBONATE
     Indication: Gastrooesophageal reflux disease
     Dosage: 500 MILLIGRAM
     Route: 048
     Dates: start: 20180426
  20. CYANOCOBALAMIN [Concomitant]
     Active Substance: CYANOCOBALAMIN
     Indication: Vitamin supplementation
     Dosage: 1000 MILLIGRAM
     Route: 048
     Dates: start: 20180426
  21. CYANOCOBALAMIN [Concomitant]
     Active Substance: CYANOCOBALAMIN
     Indication: Anaemia
  22. FLUTICASONE [Concomitant]
     Active Substance: FLUTICASONE
     Indication: Chronic obstructive pulmonary disease
     Route: 045
     Dates: start: 20180426
  23. UMECLIDINIUM BROMIDE\VILANTEROL TRIFENATATE [Concomitant]
     Active Substance: UMECLIDINIUM BROMIDE\VILANTEROL TRIFENATATE
     Indication: Chronic obstructive pulmonary disease
     Dosage: 1 PUFF
     Route: 055
     Dates: start: 20180426
  24. ZOFRAN [Concomitant]
     Active Substance: ONDANSETRON HYDROCHLORIDE
     Indication: Nausea
     Dosage: 16 MILLIGRAM
     Route: 048
     Dates: start: 20180427
  25. ZOFRAN [Concomitant]
     Active Substance: ONDANSETRON HYDROCHLORIDE
     Dosage: 8 MILLIGRAM
     Route: 048
     Dates: start: 20191103
  26. ZOFRAN [Concomitant]
     Active Substance: ONDANSETRON HYDROCHLORIDE
     Dosage: 8 MILLIGRAM
     Route: 048
     Dates: start: 20191103
  27. SENNA [Concomitant]
     Active Substance: SENNA LEAF\SENNOSIDES\SENNOSIDES A AND B
     Indication: Constipation
     Dosage: 2 TABLET
     Route: 048
     Dates: start: 20180428
  28. MAGNESIUM HYDROXIDE [Concomitant]
     Active Substance: MAGNESIUM HYDROXIDE
     Indication: Constipation
     Dosage: 30 MILLILITER
     Route: 048
     Dates: start: 20180430
  29. HYDROCORTISONE [Concomitant]
     Active Substance: HYDROCORTISONE
     Indication: Pruritus
     Dosage: 1 APPLICATION
     Route: 061
     Dates: start: 20180501
  30. PROTONIX [Concomitant]
     Active Substance: PANTOPRAZOLE SODIUM
     Indication: Prophylaxis
     Dosage: 40 MILLIGRAM
     Route: 048
     Dates: start: 20180514
  31. PROTONIX [Concomitant]
     Active Substance: PANTOPRAZOLE SODIUM
     Indication: Prophylaxis
  32. BENZOCAINE [Concomitant]
     Active Substance: BENZOCAINE
     Indication: Mucosal inflammation
     Route: 048
     Dates: start: 20180519
  33. LIDOCAINE [Concomitant]
     Active Substance: LIDOCAINE
     Indication: Pain
     Dosage: 2.5 PERCENT
     Route: 061
     Dates: start: 20190216
  34. LIDOCAINE [Concomitant]
     Active Substance: LIDOCAINE
     Indication: Arthralgia
     Dosage: 5 PERCENT
     Route: 062
     Dates: start: 20190220, end: 20190220
  35. ONDANSETRON [Concomitant]
     Active Substance: ONDANSETRON
     Indication: Nausea
     Dosage: 4 MILLIGRAM
     Route: 041
     Dates: start: 20190624
  36. ONDANSETRON [Concomitant]
     Active Substance: ONDANSETRON
     Dosage: 16 MILLIGRAM
     Route: 048
     Dates: start: 20190330
  37. FAMOTIDINE [Concomitant]
     Active Substance: FAMOTIDINE
     Indication: Gastrooesophageal reflux disease
     Dosage: 40 MILLIGRAM
     Route: 048
     Dates: start: 20190626
  38. FAMOTIDINE [Concomitant]
     Active Substance: FAMOTIDINE
     Dosage: 20 MILLIGRAM
     Route: 048
     Dates: start: 20190823
  39. DICLOFENAC SODIUM [Concomitant]
     Active Substance: DICLOFENAC SODIUM
     Indication: Arthralgia
     Dosage: 1 PERCENT
     Route: 061
     Dates: start: 201902
  40. MELATONIN [Concomitant]
     Active Substance: MELATONIN
     Indication: Insomnia
     Dosage: 6 MILLIGRAM
     Route: 048
     Dates: start: 20190321
  41. MELATONIN [Concomitant]
     Active Substance: MELATONIN
     Indication: Prophylaxis
     Dosage: 5 MILLIGRAM
     Route: 048
     Dates: start: 20191103
  42. MELATONIN [Concomitant]
     Active Substance: MELATONIN
     Dosage: 3 MILLIGRAM
     Route: 048
     Dates: start: 20181210, end: 20181212
  43. ACYCLOVIR [Concomitant]
     Active Substance: ACYCLOVIR
     Indication: Infection prophylaxis
     Dosage: 800 MILLIGRAM
     Route: 048
     Dates: start: 20180502, end: 20180515
  44. ACYCLOVIR [Concomitant]
     Active Substance: ACYCLOVIR
     Dosage: 1200 MILLIGRAM
     Route: 048
     Dates: start: 20180516, end: 20180524
  45. ACYCLOVIR [Concomitant]
     Active Substance: ACYCLOVIR
     Dosage: 800 MILLIGRAM
     Route: 048
     Dates: start: 20180524
  46. LEVOFLOXACIN [Concomitant]
     Active Substance: LEVOFLOXACIN
     Indication: Neutropenia
     Dosage: 500 MILLIGRAM
     Route: 048
     Dates: start: 20180522, end: 20180629
  47. LEVOFLOXACIN [Concomitant]
     Active Substance: LEVOFLOXACIN
     Indication: Infection prophylaxis
     Dosage: 500 MILLIGRAM
     Route: 048
     Dates: start: 20190616
  48. ACETAMINOPHEN [Concomitant]
     Active Substance: ACETAMINOPHEN
     Indication: Pain
     Dosage: 650 MILLIGRAM
     Route: 048
     Dates: start: 20190624
  49. OXYCODONE [Concomitant]
     Active Substance: OXYCODONE
     Indication: Back pain
     Dosage: 9 MILLIGRAM
     Route: 048
     Dates: start: 20190710, end: 20191103
  50. OXYCODONE [Concomitant]
     Active Substance: OXYCODONE
     Indication: Mucosal inflammation
     Dosage: 2.5 MILLIGRAM
     Route: 048
     Dates: start: 20191103
  51. OXYCODONE [Concomitant]
     Active Substance: OXYCODONE
     Dosage: 500 MILLIGRAM
     Route: 048
     Dates: start: 20180517, end: 20180524
  52. OXYCODONE [Concomitant]
     Active Substance: OXYCODONE
     Dosage: 2.5 MILLIGRAM
     Route: 048
     Dates: start: 20190704, end: 20190706
  53. CANNABIDIOL [Concomitant]
     Active Substance: CANNABIDIOL
     Indication: Back pain
     Route: 061
     Dates: start: 20190819
  54. FUROSEMIDE [Concomitant]
     Active Substance: FUROSEMIDE
     Indication: Oedema
     Dosage: 20 MILLIGRAM
     Route: 048
     Dates: start: 20190703, end: 20190703
  55. FUROSEMIDE [Concomitant]
     Active Substance: FUROSEMIDE
     Dosage: 20 MILLIGRAM
     Route: 048
     Dates: start: 20181013, end: 20190624
  56. FUROSEMIDE [Concomitant]
     Active Substance: FUROSEMIDE
     Dosage: 20 MILLIGRAM
     Route: 048
     Dates: start: 20190824
  57. GABAPENTIN [Concomitant]
     Active Substance: GABAPENTIN
     Indication: Neuropathy peripheral
     Dosage: 100 MILLIGRAM
     Route: 048
     Dates: start: 20191103
  58. PANTOPRAZOLE [Concomitant]
     Active Substance: PANTOPRAZOLE
     Indication: Gastrooesophageal reflux disease
     Dosage: 40 MILLIGRAM
     Route: 048
     Dates: start: 20191103
  59. ANORO ELLIPTA [Concomitant]
     Active Substance: UMECLIDINIUM BROMIDE\VILANTEROL TRIFENATATE
     Indication: Chronic obstructive pulmonary disease
     Dosage: 62.5-25 UG
     Route: 055
     Dates: start: 20191103

REACTIONS (1)
  - Chronic obstructive pulmonary disease [Recovered/Resolved]

NARRATIVE: CASE EVENT DATE: 20200501
